FAERS Safety Report 25489708 (Version 1)
Quarter: 2025Q2

REPORT INFORMATION
  Report Type: Spontaneous
  Country: US (occurrence: US)
  Receive Date: 20250627
  Receipt Date: 20250627
  Transmission Date: 20250716
  Serious: Yes (Other)
  Sender: ROCHE
  Company Number: US-ROCHE-10000319741

PATIENT
  Age: 43 Year
  Sex: Female

DRUGS (3)
  1. OCREVUS [Suspect]
     Active Substance: OCRELIZUMAB
     Indication: Relapsing-remitting multiple sclerosis
     Dosage: HER OCRELIZUMAB INFUSIONS: 19-JUN-2023 (LAST EVERY 6 MONTH INFUSION), 20-FEB-2024, 07-NOV-2024 (MOST
     Route: 065
     Dates: start: 201812
  2. AVONEX [Concomitant]
     Active Substance: INTERFERON BETA-1A
     Indication: Relapsing-remitting multiple sclerosis
  3. COPAXONE [Concomitant]
     Active Substance: GLATIRAMER ACETATE
     Indication: Relapsing-remitting multiple sclerosis

REACTIONS (11)
  - Diarrhoea [Unknown]
  - Liver function test abnormal [Unknown]
  - Arthralgia [Unknown]
  - Erythema nodosum [Unknown]
  - Colitis ulcerative [Unknown]
  - Enterovirus infection [Unknown]
  - Off label use [Unknown]
  - Ear infection [Unknown]
  - Cellulitis orbital [Unknown]
  - Vaginal infection [Unknown]
  - COVID-19 pneumonia [Unknown]

NARRATIVE: CASE EVENT DATE: 20220101
